FAERS Safety Report 7053644 (Version 13)
Quarter: 2013Q4

REPORT INFORMATION
  Report Type: Spontaneous
  Country: US (occurrence: US)
  Receive Date: 20090717
  Receipt Date: 20131115
  Transmission Date: 20140711
  Serious: Yes (Death, Other)
  Sender: FDA-Public Use
  Company Number: PHEH2009US07549

PATIENT
  Sex: Male

DRUGS (12)
  1. AREDIA [Suspect]
     Dosage: 90 MG,
     Route: 042
  2. ZOMETA [Suspect]
     Dosage: 4 MG,
     Route: 042
  3. LEXAPRO [Concomitant]
  4. WARFARIN [Concomitant]
  5. ALLOPURINOL [Concomitant]
  6. COMPAZINE [Concomitant]
  7. OXYCONTIN [Concomitant]
  8. DOXIL [Concomitant]
  9. VELCADE [Concomitant]
  10. DEXAMETHASONE [Concomitant]
  11. MS CONTIN [Concomitant]
  12. HYDROCODONE [Concomitant]

REACTIONS (74)
  - Plasma cell myeloma [Fatal]
  - Metastases to muscle [Fatal]
  - Metastases to bone [Fatal]
  - Osteonecrosis of jaw [Unknown]
  - Disability [Unknown]
  - Pain [Unknown]
  - Anxiety [Unknown]
  - Anhedonia [Unknown]
  - Injury [Unknown]
  - Bone cancer [Unknown]
  - Renal cyst [Unknown]
  - Renal mass [Unknown]
  - Plasmacytoma [Unknown]
  - Osteolysis [Unknown]
  - Road traffic accident [Unknown]
  - Lung infiltration [Unknown]
  - Chest pain [Unknown]
  - Dyspnoea [Unknown]
  - Nausea [Unknown]
  - Pain in extremity [Unknown]
  - Abdominal pain [Unknown]
  - Swelling [Unknown]
  - Hypertension [Unknown]
  - Sinusitis [Unknown]
  - Constipation [Unknown]
  - Back pain [Unknown]
  - Fall [Unknown]
  - Intervertebral disc degeneration [Unknown]
  - Hypotension [Unknown]
  - Fatigue [Unknown]
  - Decreased appetite [Unknown]
  - Bone pain [Unknown]
  - Depression [Unknown]
  - Anaemia [Unknown]
  - Candida infection [Unknown]
  - Arthritis [Unknown]
  - Lymphoma [Unknown]
  - Vertebral foraminal stenosis [Unknown]
  - Intervertebral disc protrusion [Unknown]
  - Skin cancer [Unknown]
  - Deep vein thrombosis [Unknown]
  - Second primary malignancy [Unknown]
  - Bronchitis chronic [Unknown]
  - Osteitis [Unknown]
  - Renal failure [Unknown]
  - Mitral valve incompetence [Unknown]
  - Tricuspid valve incompetence [Unknown]
  - Phrenic nerve paralysis [Unknown]
  - Gastrooesophageal reflux disease [Unknown]
  - Atelectasis [Unknown]
  - Lymphadenopathy [Unknown]
  - Renal atrophy [Unknown]
  - Asthma [Unknown]
  - Lipoma [Unknown]
  - Squamous cell carcinoma of skin [Unknown]
  - Skin lesion [Unknown]
  - Pulmonary embolism [Unknown]
  - Diabetes mellitus [Unknown]
  - Gout [Unknown]
  - Cardiomegaly [Unknown]
  - Conjunctivitis [Unknown]
  - Diaphragmatic paralysis [Unknown]
  - Upper respiratory tract infection [Unknown]
  - Retroperitoneal mass [Unknown]
  - Retroperitoneal lymphadenopathy [Unknown]
  - Bone lesion [Unknown]
  - Spinal deformity [Unknown]
  - Granuloma [Unknown]
  - Bone swelling [Unknown]
  - Nephrolithiasis [Unknown]
  - Obstructive uropathy [Unknown]
  - Spinal osteoarthritis [Unknown]
  - Erythema [Unknown]
  - Flank pain [Unknown]
